FAERS Safety Report 9015228 (Version 1)
Quarter: 2013Q1

REPORT INFORMATION
  Report Type: Spontaneous
  Country: US (occurrence: None)
  Receive Date: 20130109
  Receipt Date: 20130109
  Transmission Date: 20140127
  Serious: Yes (Hospitalization, Other)
  Sender: FDA-Public Use
  Company Number: None

PATIENT
  Age: 84 Year
  Sex: Male
  Weight: 54.1 kg

DRUGS (1)
  1. LIALDA [Suspect]
     Indication: DIARRHOEA
     Dosage: 1.2 G TWICE DAILY
     Route: 048

REACTIONS (6)
  - Agranulocytosis [None]
  - Pyrexia [None]
  - Confusional state [None]
  - Malaise [None]
  - Asthenia [None]
  - Speech disorder [None]
